FAERS Safety Report 23727899 (Version 1)
Quarter: 2024Q2

REPORT INFORMATION
  Report Type: Report from Study
  Country: ZA (occurrence: ZA)
  Receive Date: 20240410
  Receipt Date: 20240410
  Transmission Date: 20240716
  Serious: Yes (Death)
  Sender: FDA-Public Use
  Company Number: ZA-AstraZeneca-2022A127985

PATIENT
  Age: 190 Day
  Sex: Male
  Weight: 3 kg

DRUGS (1)
  1. SYNAGIS [Suspect]
     Active Substance: PALIVIZUMAB
     Indication: Antiviral prophylaxis
     Dosage: ONCE A MONTH
     Route: 030
     Dates: start: 20220303

REACTIONS (1)
  - Death [Fatal]

NARRATIVE: CASE EVENT DATE: 20220317
